FAERS Safety Report 7277230-7 (Version None)
Quarter: 2011Q1

REPORT INFORMATION
  Report Type: 
  Country: None (occurrence: None)
  Receive Date: 20110202
  Receipt Date: 20110202
  Transmission Date: 20110831
  Serious: Yes (Hospitalization, Other)
  Sender: FDA-Public Use
  Company Number: None

PATIENT
  Age: 49 Year
  Sex: Female
  Weight: 83.9154 kg

DRUGS (1)
  1. PREMPRO [Suspect]
     Indication: HORMONE REPLACEMENT THERAPY
     Dosage: 0.625MG/2.5MG DAILY PO
     Route: 048
     Dates: start: 20101020, end: 20101203

REACTIONS (6)
  - MUSCULOSKELETAL CHEST PAIN [None]
  - ARTHRALGIA [None]
  - PAIN [None]
  - JOINT STIFFNESS [None]
  - DYSPNOEA [None]
  - DRUG EFFECT DECREASED [None]
